FAERS Safety Report 4704164-1 (Version None)
Quarter: 2005Q2

REPORT INFORMATION
  Report Type: 
  Country: None (occurrence: None)
  Receive Date: 20050630
  Receipt Date: 20050223
  Transmission Date: 20051028
  Serious: Yes (Other)
  Sender: FDA-Public Use
  Company Number: PHEH2005US02378

PATIENT
  Age: 76 Year
  Sex: Female
  Weight: 138 kg

DRUGS (9)
  1. DIOVAN [Suspect]
     Indication: HYPERTENSION
  2. ALLEGRA [Concomitant]
  3. ALBUTEROL [Concomitant]
  4. SALMETEROL [Concomitant]
  5. ASPIRIN [Concomitant]
  6. FOSAMAX [Concomitant]
  7. ZOCOR [Concomitant]
  8. ADVAIR [Concomitant]
     Dosage: 250/50 BID
  9. HYDROCHLOROTHIAZIDE [Concomitant]

REACTIONS (21)
  - ATOPY [None]
  - CANDIDIASIS [None]
  - DERMATITIS ATOPIC [None]
  - ECZEMA NUMMULAR [None]
  - EYE INFECTION [None]
  - INCISIONAL DRAINAGE [None]
  - LYMPHOCYTIC INFILTRATION [None]
  - MYCOSIS FUNGOIDES [None]
  - NASAL CONGESTION [None]
  - PRURITUS [None]
  - RASH [None]
  - RASH ERYTHEMATOUS [None]
  - RASH PAPULOSQUAMOUS [None]
  - RASH SCALY [None]
  - SKIN BURNING SENSATION [None]
  - SKIN HYPOPIGMENTATION [None]
  - SKIN INFECTION [None]
  - SKIN INFLAMMATION [None]
  - SKIN OEDEMA [None]
  - SKIN TEST POSITIVE [None]
  - STAPHYLOCOCCAL INFECTION [None]
